FAERS Safety Report 8123700-9 (Version None)
Quarter: 2012Q1

REPORT INFORMATION
  Report Type: 
  Country: None (occurrence: None)
  Receive Date: 20120208
  Receipt Date: 20120202
  Transmission Date: 20120608
  Serious: Yes (Death, Hospitalization, Other)
  Sender: FDA-Public Use
  Company Number: US-ELI_LILLY_AND_COMPANY-US201110004497

PATIENT
  Sex: Female

DRUGS (10)
  1. PROZAC [Concomitant]
     Indication: DEPRESSION
  2. TYLENOL (CAPLET) [Concomitant]
     Indication: PAIN
     Dosage: UNK, PRN
  3. GLIPIZIDE [Concomitant]
     Indication: DIABETES MELLITUS
     Dosage: 10 MG, OTHER
     Dates: start: 20070725
  4. GLUCOPHAGE [Concomitant]
     Indication: DIABETES MELLITUS
     Dosage: 1000 MG, UNK
     Dates: start: 20080717
  5. LOVASTATIN [Concomitant]
     Indication: HYPERLIPIDAEMIA
     Dosage: 80 MG, QD
  6. BYETTA [Suspect]
     Dosage: 10 UG, BID
     Dates: start: 20090109, end: 20090801
  7. LANTUS [Concomitant]
     Indication: DIABETES MELLITUS
     Dosage: 10 U, QD
     Dates: start: 20090508
  8. CALCIUM + VITAMIN D [Concomitant]
     Dosage: UNK
     Dates: start: 20070727
  9. COREG CR [Concomitant]
     Indication: HYPERTENSION
     Dosage: 40 MG, UNK
     Dates: start: 20080609
  10. BYETTA [Suspect]
     Indication: DIABETES MELLITUS
     Dosage: 5 UG, BID
     Dates: start: 20080717

REACTIONS (9)
  - LIVER ABSCESS [None]
  - CHOLANGITIS [None]
  - RESPIRATORY FAILURE [None]
  - BILE DUCT OBSTRUCTION [None]
  - METASTATIC NEOPLASM [None]
  - PANCREATIC CARCINOMA [None]
  - SEPTIC SHOCK [None]
  - WEIGHT DECREASED [None]
  - RENAL FAILURE ACUTE [None]
